FAERS Safety Report 8031766-X (Version None)
Quarter: 2012Q1

REPORT INFORMATION
  Report Type: 
  Country: None (occurrence: None)
  Receive Date: 20120109
  Receipt Date: 20111228
  Transmission Date: 20120608
  Serious: Yes (Hospitalization, Disabling, Other)
  Sender: FDA-Public Use
  Company Number: JP-PFIZER INC-2011292507

PATIENT
  Age: 64 Year
  Sex: Female
  Weight: 61 kg

DRUGS (3)
  1. SELBEX [Concomitant]
     Dosage: UNK
     Dates: start: 20080430, end: 20111102
  2. CELECOXIB [Suspect]
     Indication: ANALGESIC THERAPY
     Dosage: 100 MG, 2X/DAY
     Route: 048
     Dates: start: 20080430, end: 20111102
  3. VOLTAREN [Suspect]
     Route: 054

REACTIONS (1)
  - HAEMATEMESIS [None]
